FAERS Safety Report 4592818-X (Version None)
Quarter: 2005Q1

REPORT INFORMATION
  Report Type: 
  Country: None (occurrence: None)
  Receive Date: 20050228
  Receipt Date: 20040823
  Transmission Date: 20050727
  Serious: Yes (Other)
  Sender: FDA-Public Use
  Company Number: US-BRISTOL-MYERS SQUIBB COMPANY-12680880

PATIENT
  Age: 53 Year
  Sex: Female

DRUGS (2)
  1. ESTRACE [Suspect]
     Indication: HORMONE REPLACEMENT THERAPY
     Dates: start: 19940101, end: 19950101
  2. PREMPRO [Suspect]
     Indication: HORMONE REPLACEMENT THERAPY
     Dates: start: 19950101, end: 20010201

REACTIONS (2)
  - BREAST CANCER [None]
  - BREAST CANCER FEMALE [None]
